FAERS Safety Report 11363987 (Version 1)
Quarter: 2015Q3

REPORT INFORMATION
  Report Type: Not Available
  Country: IN (occurrence: IN)
  Receive Date: 20150811
  Receipt Date: 20150811
  Transmission Date: 20151125
  Serious: No
  Sender: FDA-Public Use
  Company Number: IN-LUPIN PHARMACEUTICALS INC.-E2B_00003386

PATIENT
  Age: 2 Year
  Sex: Male

DRUGS (1)
  1. L-CIN SYRUP 60ML [Suspect]
     Active Substance: LEVOFLOXACIN
     Indication: PYREXIA
     Dosage: 2 TEASPOONS TWICE A DAY
     Route: 048
     Dates: start: 20150318

REACTIONS (1)
  - Hyperhidrosis [Not Recovered/Not Resolved]

NARRATIVE: CASE EVENT DATE: 20150319
